FAERS Safety Report 23912923 (Version 1)
Quarter: 2024Q2

REPORT INFORMATION
  Report Type: Spontaneous
  Country: US (occurrence: US)
  Receive Date: 20240529
  Receipt Date: 20240529
  Transmission Date: 20240716
  Serious: Yes (Hospitalization, Other)
  Sender: FDA-Public Use
  Company Number: US-BRISTOL-MYERS SQUIBB COMPANY-2024-084025

PATIENT
  Age: 77 Year
  Sex: Female
  Weight: 70.76 kg

DRUGS (1)
  1. ELIQUIS [Suspect]
     Active Substance: APIXABAN
     Indication: Product used for unknown indication
     Route: 048

REACTIONS (4)
  - Hepatic cancer [Unknown]
  - Cardiovascular disorder [Unknown]
  - Inability to afford medication [Unknown]
  - Therapy interrupted [Unknown]
